FAERS Safety Report 5888395-3 (Version None)
Quarter: 2008Q3

REPORT INFORMATION
  Report Type: 
  Country: None (occurrence: None)
  Receive Date: 20080916
  Receipt Date: 20080916
  Transmission Date: 20090109
  Serious: Yes (Other)
  Sender: FDA-Public Use
  Company Number: None

PATIENT
  Sex: Female
  Weight: 58.0604 kg

DRUGS (1)
  1. DEPO-PROVERA [Suspect]
     Indication: CONTRACEPTION
     Dosage: 104MG 12 WEEKS SQ
     Route: 058
     Dates: start: 20061108, end: 20071224

REACTIONS (2)
  - FOOT DEFORMITY [None]
  - MUSCLE DISORDER [None]
